FAERS Safety Report 5727429-3 (Version None)
Quarter: 2008Q2

REPORT INFORMATION
  Report Type: 
  Country: None (occurrence: None)
  Receive Date: 20080505
  Receipt Date: 20080502
  Transmission Date: 20081010
  Serious: Yes (Death)
  Sender: FDA-Public Use
  Company Number: AU-ASTRAZENECA-2008AP03344

PATIENT
  Age: 60 Year
  Sex: Female
  Weight: 57.2 kg

DRUGS (3)
  1. ANASTROZOLE [Suspect]
     Indication: BREAST NEOPLASM
     Route: 048
     Dates: start: 19990315, end: 20070321
  2. HERBAL MEDICINES [Suspect]
  3. TAMOXIFEN CITRATE [Suspect]
     Dosage: LONG TERM

REACTIONS (5)
  - ANOREXIA [None]
  - AUTOIMMUNE HEPATITIS [None]
  - MALAISE [None]
  - PANCYTOPENIA [None]
  - PYREXIA [None]
